FAERS Safety Report 6139876-9 (Version None)
Quarter: 2009Q2

REPORT INFORMATION
  Report Type: 
  Country: None (occurrence: None)
  Receive Date: 20090401
  Receipt Date: 20090330
  Transmission Date: 20091009
  Serious: Yes (Other)
  Sender: FDA-Public Use
  Company Number: DE-BAYER-200916248GPV

PATIENT
  Age: 59 Year
  Sex: Female
  Weight: 73 kg

DRUGS (4)
  1. BETAFERON [Suspect]
     Indication: ENCEPHALITIS
     Route: 058
     Dates: start: 20090215, end: 20090323
  2. CARBAMAZEPIN [Concomitant]
     Indication: DRUG USE FOR UNKNOWN INDICATION
  3. TIZANIDINE HCL [Concomitant]
     Indication: DRUG USE FOR UNKNOWN INDICATION
  4. MIANSERIN [Concomitant]
     Indication: DRUG USE FOR UNKNOWN INDICATION

REACTIONS (2)
  - DEPRESSION [None]
  - INJECTION SITE INFLAMMATION [None]
